APPROVED DRUG PRODUCT: ACETAMINOPHEN AND CODEINE PHOSPHATE
Active Ingredient: ACETAMINOPHEN; CODEINE PHOSPHATE
Strength: 500MG;60MG
Dosage Form/Route: TABLET;ORAL
Application: A089513 | Product #001
Applicant: ROXANE LABORATORIES INC
Approved: Apr 25, 1989 | RLD: No | RS: No | Type: DISCN